FAERS Safety Report 6993401-9 (Version None)
Quarter: 2010Q3

REPORT INFORMATION
  Report Type: 
  Country: None (occurrence: None)
  Receive Date: 20100917
  Receipt Date: 20100527
  Transmission Date: 20110219
  Serious: No
  Sender: FDA-Public Use
  Company Number: US-ASTRAZENECA-2010SE24671

PATIENT
  Age: 36 Year
  Sex: Female

DRUGS (2)
  1. SEROQUEL [Suspect]
     Indication: BIPOLAR DISORDER
     Dosage: AT NIGHT
     Route: 048
     Dates: start: 20100518
  2. SEROQUEL [Suspect]
     Indication: DEPRESSION
     Dosage: AT NIGHT
     Route: 048
     Dates: start: 20100518

REACTIONS (4)
  - FLAT AFFECT [None]
  - PRE-EXISTING CONDITION IMPROVED [None]
  - TEARFULNESS [None]
  - THERAPEUTIC RESPONSE UNEXPECTED [None]
